FAERS Safety Report 9098233 (Version 1)
Quarter: 2013Q1

REPORT INFORMATION
  Report Type: Spontaneous
  Country: NO (occurrence: NO)
  Receive Date: 20130213
  Receipt Date: 20130213
  Transmission Date: 20140127
  Serious: Yes (Hospitalization)
  Sender: FDA-Public Use
  Company Number: PHHY2013NO013002

PATIENT
  Sex: Female

DRUGS (10)
  1. SIMVASTATIN [Suspect]
     Route: 048
  2. ERYTHROMYCIN [Interacting]
     Indication: BRONCHITIS
     Route: 048
     Dates: start: 201212
  3. PREDNISOLON [Concomitant]
     Dosage: 5 MG, QD
     Route: 048
  4. MAREVAN [Concomitant]
     Route: 048
  5. FOSAMAX [Concomitant]
     Dosage: 70 MG, QW
     Route: 048
  6. ZANIDIP [Concomitant]
     Route: 048
  7. FURIX [Concomitant]
     Route: 048
  8. METOPROLOL SANDOZ [Concomitant]
     Dosage: 50 MG, BID
     Route: 048
  9. ATACAND PLUS [Concomitant]
     Dosage: 1 DF, QD
     Route: 048
  10. CALCIGRAN FORTE [Concomitant]
     Dosage: 1 DF, QD, TABLET STRENGTH: 500 MG/400 IE

REACTIONS (4)
  - General physical health deterioration [Recovering/Resolving]
  - Drug level increased [Recovering/Resolving]
  - Myalgia [Recovering/Resolving]
  - Drug interaction [Recovering/Resolving]
